FAERS Safety Report 16644179 (Version 5)
Quarter: 2023Q1

REPORT INFORMATION
  Report Type: Report from Study
  Country: CA (occurrence: CA)
  Receive Date: 20190729
  Receipt Date: 20230203
  Transmission Date: 20230417
  Serious: Yes (Hospitalization, Other)
  Sender: FDA-Public Use
  Company Number: CA-BAUSCH-BL-2019-021332

PATIENT
  Age: 28 Year
  Sex: Female

DRUGS (3)
  1. SILIQ [Suspect]
     Active Substance: BRODALUMAB
     Indication: Psoriasis
     Dosage: 210 MG/1.5 ML, WEEKLY
     Route: 058
     Dates: start: 20181005, end: 201810
  2. SILIQ [Suspect]
     Active Substance: BRODALUMAB
     Dosage: 210 MG/ 1.5 ML, Q2WEEKS
     Route: 058
     Dates: start: 2018, end: 201907
  3. SILIQ [Suspect]
     Active Substance: BRODALUMAB
     Dosage: 210 MG/ 1.5 ML, Q2WEEKS
     Route: 058
     Dates: start: 20190721

REACTIONS (6)
  - Mammoplasty [Unknown]
  - Hysterectomy [Unknown]
  - Influenza [Recovering/Resolving]
  - Psoriasis [Not Recovered/Not Resolved]
  - Intentional product use issue [Unknown]
  - Product use issue [Unknown]

NARRATIVE: CASE EVENT DATE: 20190101
